FAERS Safety Report 4422391-8 (Version None)
Quarter: 2004Q3

REPORT INFORMATION
  Report Type: 
  Country: None (occurrence: None)
  Receive Date: 20040806
  Receipt Date: 20040804
  Transmission Date: 20050211
  Serious: Yes (Other)
  Sender: FDA-Public Use
  Company Number: 2004213256US

PATIENT
  Age: 60 Year
  Sex: Female

DRUGS (2)
  1. ZYVOX [Suspect]
     Indication: STAPHYLOCOCCAL INFECTION
     Dosage: 600 MG, BID, ORAL
     Route: 048
     Dates: start: 20030730, end: 20031015
  2. TEQUIN [Concomitant]

REACTIONS (6)
  - DYSAESTHESIA [None]
  - HYPOAESTHESIA [None]
  - LOSS OF PROPRIOCEPTION [None]
  - PAIN IN EXTREMITY [None]
  - PHYSICAL EXAMINATION ABNORMAL [None]
  - SPINAL CORD DISORDER [None]
